FAERS Safety Report 7539776-3 (Version None)
Quarter: 2011Q2

REPORT INFORMATION
  Report Type: 
  Country: None (occurrence: None)
  Receive Date: 20110610
  Receipt Date: 20110530
  Transmission Date: 20111010
  Serious: Yes (Hospitalization)
  Sender: FDA-Public Use
  Company Number: PHHY2011JP06421

PATIENT
  Sex: Male

DRUGS (3)
  1. TASIGNA [Suspect]
     Indication: CHRONIC MYELOID LEUKAEMIA
     Dosage: 800 MG, QD
     Route: 048
     Dates: start: 20090623
  2. SELBEX [Concomitant]
     Indication: PROPHYLAXIS
     Dosage: 1.5 G, UNK
     Route: 048
     Dates: start: 20090804
  3. FAMOTIDINE [Concomitant]
     Indication: PROPHYLAXIS
     Dosage: 40 MG, UNK
     Route: 048
     Dates: start: 20090812

REACTIONS (2)
  - HYPOACUSIS [None]
  - CEREBRAL INFARCTION [None]
